FAERS Safety Report 4487369-7 (Version None)
Quarter: 2004Q4

REPORT INFORMATION
  Report Type: 
  Country: None (occurrence: None)
  Receive Date: 20041022
  Receipt Date: 20041013
  Transmission Date: 20050328
  Serious: Yes (Death)
  Sender: FDA-Public Use
  Company Number: 2004-01-0966

PATIENT
  Age: 40 Year
  Sex: Male

DRUGS (2)
  1. RIBAVIRIN [Suspect]
     Indication: HEPATITIS C
     Dosage: SUBCUTANEOUS
     Route: 058
     Dates: start: 20000101, end: 20000101
  2. INTERFERON ALFA-2B [Suspect]
     Indication: HEPATITIS C
     Dosage: ORAL
     Route: 048
     Dates: start: 20000101, end: 20000101

REACTIONS (3)
  - ADENOCARCINOMA [None]
  - INTESTINAL OBSTRUCTION [None]
  - METASTASES TO ABDOMINAL CAVITY [None]
